FAERS Safety Report 7076486-3 (Version None)
Quarter: 2010Q4

REPORT INFORMATION
  Report Type: 
  Country: None (occurrence: None)
  Receive Date: 20101029
  Receipt Date: 20101029
  Transmission Date: 20110411
  Serious: Yes (Life-Threatening, Hospitalization)
  Sender: FDA-Public Use
  Company Number: None

PATIENT
  Age: 86 Year
  Sex: Female
  Weight: 72.5755 kg

DRUGS (6)
  1. MIRALAX [Suspect]
     Indication: CONSTIPATION
     Dosage: 1 DOSE-17 GRAMS -8/11 + 8/19
     Dates: start: 20100811
  2. MIRALAX [Suspect]
     Indication: CONSTIPATION
     Dosage: 1 DOSE-17 GRAMS -8/11 + 8/19
     Dates: start: 20100819
  3. MIRALAX [Suspect]
     Indication: CONSTIPATION
     Dosage: 1 DOSE-17 GRAMS -8/11 + 8/19
     Dates: start: 20100902
  4. MIRALAX [Suspect]
     Indication: CONSTIPATION
     Dosage: 1 DOSE-17 GRAMS -8/11 + 8/19
     Dates: start: 20100902
  5. MIRALAX [Suspect]
     Indication: CONSTIPATION
     Dosage: 1 DOSE-17 GRAMS -8/11 + 8/19
     Dates: start: 20100914
  6. MIRALAX [Suspect]
     Indication: CONSTIPATION
     Dosage: 1 DOSE-17 GRAMS -8/11 + 8/19
     Dates: start: 20101004

REACTIONS (2)
  - MALAISE [None]
  - REACTION TO DRUG EXCIPIENTS [None]
